FAERS Safety Report 8876720 (Version 1)
Quarter: 2012Q4

REPORT INFORMATION
  Report Type: 
  Country: US (occurrence: US)
  Receive Date: 20121029
  Receipt Date: 20121029
  Transmission Date: 20130627
  Serious: Yes (Other)
  Sender: FDA-Public Use
  Company Number: US-PFIZER INC-2012268873

PATIENT
  Sex: Female

DRUGS (3)
  1. NORVASC [Suspect]
  2. LIPITOR [Suspect]
  3. GLUCOTROL XL [Suspect]

REACTIONS (1)
  - Polyp [Unknown]
